FAERS Safety Report 10483559 (Version 1)
Quarter: 2014Q3

REPORT INFORMATION
  Report Type: Spontaneous
  Country: US (occurrence: None)
  Receive Date: 20140929
  Receipt Date: 20140929
  Transmission Date: 20150326
  Serious: No
  Sender: FDA-Public Use
  Company Number: None

PATIENT
  Age: 20 Year
  Sex: Female
  Weight: 71.22 kg

DRUGS (1)
  1. AMOXICILLIN. [Suspect]
     Active Substance: AMOXICILLIN
     Indication: SINUSITIS
     Dosage: 2 CAPSULES.BID.
     Route: 048

REACTIONS (3)
  - Dizziness [None]
  - Balance disorder [None]
  - Feeling drunk [None]

NARRATIVE: CASE EVENT DATE: 20140926
